FAERS Safety Report 20730221 (Version 1)
Quarter: 2022Q2

REPORT INFORMATION
  Report Type: Spontaneous
  Country: IN (occurrence: IN)
  Receive Date: 20220420
  Receipt Date: 20220420
  Transmission Date: 20220721
  Serious: Yes (Death)
  Sender: FDA-Public Use
  Company Number: IN-PFIZER INC-2020333963

PATIENT
  Age: 57 Year
  Sex: Female

DRUGS (6)
  1. LORLATINIB [Suspect]
     Active Substance: LORLATINIB
     Dosage: ONCE DAILY
     Route: 048
  2. LORLATINIB [Suspect]
     Active Substance: LORLATINIB
     Dosage: ONCE DAILY
     Route: 048
     Dates: start: 20201229
  3. LORLATINIB [Suspect]
     Active Substance: LORLATINIB
     Dosage: 75 MG, 1X/DAY
     Route: 048
     Dates: start: 20210302
  4. LORLATINIB [Suspect]
     Active Substance: LORLATINIB
     Dosage: UNK
     Route: 048
     Dates: start: 202008, end: 20210804
  5. ATORVASTATIN CALCIUM [Concomitant]
     Active Substance: ATORVASTATIN CALCIUM
     Dosage: HS
  6. RACIPER-D [Concomitant]
     Dosage: OD

REACTIONS (1)
  - Death [Fatal]

NARRATIVE: CASE EVENT DATE: 20210804
